FAERS Safety Report 7038857-0 (Version None)
Quarter: 2010Q4

REPORT INFORMATION
  Report Type: 
  Country: None (occurrence: None)
  Receive Date: 20101012
  Receipt Date: 20100930
  Transmission Date: 20110411
  Serious: No
  Sender: FDA-Public Use
  Company Number: 2009BI037739

PATIENT
  Sex: Female

DRUGS (1)
  1. TYSABRI [Suspect]
     Indication: MULTIPLE SCLEROSIS
     Route: 042
     Dates: start: 20090317

REACTIONS (7)
  - CYSTITIS [None]
  - DYSURIA [None]
  - FATIGUE [None]
  - FUNGAL INFECTION [None]
  - HERPES VIRUS INFECTION [None]
  - PAIN IN EXTREMITY [None]
  - URINARY TRACT INFECTION [None]
